FAERS Safety Report 10499914 (Version 2)
Quarter: 2014Q4

REPORT INFORMATION
  Report Type: Spontaneous
  Country: US (occurrence: US)
  Receive Date: 20141006
  Receipt Date: 20141006
  Transmission Date: 20150528
  Serious: No
  Sender: FDA-Public Use
  Company Number: US-AMGEN INC.-USASP2014055656

PATIENT
  Age: 71 Year
  Sex: Female
  Weight: 68.03 kg

DRUGS (1)
  1. PROLIA [Suspect]
     Active Substance: DENOSUMAB
     Indication: OSTEOPOROSIS POSTMENOPAUSAL
     Dosage: 60 MG, Q6MO
     Route: 058
     Dates: start: 20131018

REACTIONS (3)
  - Mouth ulceration [Recovered/Resolved]
  - Lip dry [Unknown]
  - Oral herpes [Unknown]

NARRATIVE: CASE EVENT DATE: 201311
